FAERS Safety Report 7987960-7 (Version None)
Quarter: 2011Q4

REPORT INFORMATION
  Report Type: 
  Country: None (occurrence: None)
  Receive Date: 20111216
  Receipt Date: 20110726
  Transmission Date: 20120403
  Serious: Yes (Other)
  Sender: FDA-Public Use
  Company Number: US-BRISTOL-MYERS SQUIBB COMPANY-15748411

PATIENT
  Age: 24 Year
  Sex: Female
  Weight: 82 kg

DRUGS (1)
  1. ABILIFY [Suspect]
     Indication: DEPRESSION
     Dates: start: 20090101, end: 20100101

REACTIONS (2)
  - WEIGHT INCREASED [None]
  - TREMOR [None]
